FAERS Safety Report 13384859 (Version 1)
Quarter: 2017Q1

REPORT INFORMATION
  Report Type: Spontaneous
  Country: SG (occurrence: US)
  Receive Date: 20170330
  Receipt Date: 20170330
  Transmission Date: 20170429
  Serious: Yes (Hospitalization)
  Sender: FDA-Public Use
  Company Number: None

PATIENT
  Age: 67 Year
  Sex: Male
  Weight: 76.3 kg

DRUGS (1)
  1. CISPLATIN. [Suspect]
     Active Substance: CISPLATIN
     Dates: end: 20170315

REACTIONS (6)
  - Lung infiltration [None]
  - Radiation skin injury [None]
  - Dyspnoea [None]
  - Increased viscosity of bronchial secretion [None]
  - Pyrexia [None]
  - Productive cough [None]

NARRATIVE: CASE EVENT DATE: 20170323
